FAERS Safety Report 8110975-5 (Version None)
Quarter: 2012Q1

REPORT INFORMATION
  Report Type: 
  Country: None (occurrence: None)
  Receive Date: 20120203
  Receipt Date: 20110120
  Transmission Date: 20120608
  Serious: No
  Sender: FDA-Public Use
  Company Number: US-GLAXOSMITHKLINE-A0907726A

PATIENT
  Age: 26 Year
  Sex: Female

DRUGS (3)
  1. LAMICTAL [Suspect]
     Indication: MIGRAINE
     Dosage: 400MG PER DAY
     Route: 048
     Dates: start: 20101201
  2. CYMBALTA [Concomitant]
  3. EXCEDRIN (MIGRAINE) [Concomitant]

REACTIONS (2)
  - MIGRAINE [None]
  - DEPRESSION [None]
